FAERS Safety Report 21671691 (Version 1)
Quarter: 2022Q4

REPORT INFORMATION
  Report Type: Report from Study
  Country: US (occurrence: US)
  Receive Date: 20221202
  Receipt Date: 20221202
  Transmission Date: 20230113
  Serious: Yes (Hospitalization, Other)
  Sender: FDA-Public Use
  Company Number: US-BRISTOL-MYERS SQUIBB COMPANY-2022-025599

PATIENT
  Age: 77 Year
  Sex: Male
  Weight: 88.45 kg

DRUGS (6)
  1. REVLIMID [Suspect]
     Active Substance: LENALIDOMIDE
     Indication: Plasma cell myeloma
     Dosage: DIALY-DAYS 1-14?EVERY 21 DAY CYCLE
     Route: 048
     Dates: start: 20220315
  2. REVLIMID [Suspect]
     Active Substance: LENALIDOMIDE
     Dosage: ONCE DAILY 21 OF 28 DAYS
     Route: 048
     Dates: start: 20220315
  3. VELCADE [Suspect]
     Active Substance: BORTEZOMIB
     Indication: Product used for unknown indication
     Route: 065
  4. DEXAMETHASONE [Concomitant]
     Active Substance: DEXAMETHASONE
     Indication: Product used for unknown indication
     Route: 065
  5. ASPIRIN [Concomitant]
     Active Substance: ASPIRIN
     Indication: Product used for unknown indication
     Route: 065
  6. VITAMIN B COMPLEX [Concomitant]
     Active Substance: CYANOCOBALAMIN\DEXPANTHENOL\NIACINAMIDE\PYRIDOXINE HYDROCHLORIDE\RIBOFLAVIN 5^-PHOSPHATE SODIUM\THIA
     Indication: Product used for unknown indication
     Route: 065

REACTIONS (6)
  - Haemorrhage [Unknown]
  - Full blood count decreased [Unknown]
  - Platelet count decreased [Unknown]
  - Red blood cell count decreased [Unknown]
  - Contusion [Unknown]
  - Intentional product use issue [Unknown]

NARRATIVE: CASE EVENT DATE: 20221101
